FAERS Safety Report 6690608-5 (Version None)
Quarter: 2010Q2

REPORT INFORMATION
  Report Type: 
  Country: None (occurrence: None)
  Receive Date: 20100421
  Receipt Date: 20100412
  Transmission Date: 20101027
  Serious: Yes (Hospitalization)
  Sender: FDA-Public Use
  Company Number: D0067212A

PATIENT
  Age: 36 Year
  Sex: Female
  Weight: 65 kg

DRUGS (6)
  1. SALBUTAMOL [Suspect]
     Indication: RESPIRATORY TRACT INFECTION
     Route: 055
     Dates: start: 20090827
  2. CLINDAMYCIN HCL [Suspect]
     Indication: RESPIRATORY TRACT INFECTION
     Dosage: 600MG TWICE PER DAY
     Route: 048
     Dates: start: 20090827, end: 20090829
  3. VIVAGLOBIN [Suspect]
     Indication: IMMUNODEFICIENCY
     Dosage: 20ML PER DAY
     Route: 058
     Dates: start: 20000101
  4. SYMBICORT [Suspect]
     Indication: RESPIRATORY TRACT INFECTION
     Route: 055
     Dates: start: 20090827
  5. AMPICILLIN AND SULBACTAM [Suspect]
     Indication: RESPIRATORY TRACT INFECTION
     Dosage: 375MG TWICE PER DAY
     Route: 048
     Dates: start: 20090829, end: 20090902
  6. RULID [Suspect]
     Indication: RESPIRATORY TRACT INFECTION
     Dosage: 300MG PER DAY
     Route: 048
     Dates: start: 20090829, end: 20090902

REACTIONS (3)
  - DERMATITIS ALLERGIC [None]
  - PRURITUS [None]
  - RESTLESSNESS [None]
